FAERS Safety Report 19401411 (Version 1)
Quarter: 2021Q2

REPORT INFORMATION
  Report Type: Spontaneous
  Country: US (occurrence: US)
  Receive Date: 20210611
  Receipt Date: 20210611
  Transmission Date: 20210717
  Serious: No
  Sender: FDA-Public Use
  Company Number: US-THERATECHNOLOGIES INC.-2021-THE-TES-000156

PATIENT
  Age: 62 Year
  Sex: Female

DRUGS (1)
  1. EGRIFTA SV [Suspect]
     Active Substance: TESAMORELIN ACETATE
     Indication: LIPODYSTROPHY ACQUIRED
     Dosage: UNK
     Route: 058
     Dates: end: 20201215

REACTIONS (1)
  - Product dose omission issue [Recovered/Resolved]

NARRATIVE: CASE EVENT DATE: 20201215
